FAERS Safety Report 10742713 (Version 2)
Quarter: 2015Q2

REPORT INFORMATION
  Report Type: Spontaneous
  Country: VE (occurrence: VE)
  Receive Date: 20150127
  Receipt Date: 20150522
  Transmission Date: 20150821
  Serious: Yes (Hospitalization, Other)
  Sender: FDA-Public Use
  Company Number: PHHY2015VE008889

PATIENT
  Age: 53 Year
  Sex: Male

DRUGS (4)
  1. LEPONEX [Suspect]
     Active Substance: CLOZAPINE
     Indication: SCHIZOPHRENIA, PARANOID TYPE
     Dosage: 250 MG, QD
     Route: 048
     Dates: start: 2001, end: 201408
  2. QUETIAPINE [Suspect]
     Active Substance: QUETIAPINE
     Indication: PRODUCT USED FOR UNKNOWN INDICATION
     Dosage: 800 MG, QD
     Route: 065
  3. SINOGAN [Suspect]
     Active Substance: LEVOMEPROMAZINE
     Indication: PRODUCT USED FOR UNKNOWN INDICATION
     Dosage: 150 MG, QD
     Route: 065
  4. CLONAC [Suspect]
     Active Substance: DICLOFENAC SODIUM
     Indication: INSOMNIA
     Dosage: 2 MG, QD
     Route: 065

REACTIONS (8)
  - Diet refusal [Not Recovered/Not Resolved]
  - Dyskinesia [Recovering/Resolving]
  - Aggression [Not Recovered/Not Resolved]
  - Hallucination [Not Recovered/Not Resolved]
  - Schizophrenia [Recovering/Resolving]
  - Abnormal behaviour [Not Recovered/Not Resolved]
  - Fluid imbalance [Recovering/Resolving]
  - Parkinsonism [Recovering/Resolving]

NARRATIVE: CASE EVENT DATE: 2014
